FAERS Safety Report 7802217-2 (Version None)
Quarter: 2011Q4

REPORT INFORMATION
  Report Type: 
  Country: None (occurrence: None)
  Receive Date: 20111007
  Receipt Date: 20110924
  Transmission Date: 20120403
  Serious: No
  Sender: FDA-Public Use
  Company Number: US-B.I. PHARMACEUTICALS,INC./RIDGEFIELD-2011-BP-22838BP

PATIENT
  Sex: Female

DRUGS (2)
  1. ZANTAC [Suspect]
     Indication: GASTROOESOPHAGEAL REFLUX DISEASE
     Route: 048
     Dates: start: 20060101
  2. ZANTAC [Suspect]
     Route: 048
     Dates: start: 20110924, end: 20110924

REACTIONS (1)
  - ACCIDENTAL EXPOSURE [None]
